FAERS Safety Report 24054939 (Version 1)
Quarter: 2024Q3

REPORT INFORMATION
  Report Type: Spontaneous
  Country: CN (occurrence: CN)
  Receive Date: 20240705
  Receipt Date: 20240705
  Transmission Date: 20241017
  Serious: Yes (Other)
  Sender: MERCK
  Company Number: CN-009507513-2406CHN010303

PATIENT
  Age: 63 Year
  Sex: Male
  Weight: 59 kg

DRUGS (1)
  1. CILASTATIN SODIUM\IMIPENEM [Suspect]
     Active Substance: CILASTATIN SODIUM\IMIPENEM
     Indication: Pneumonia bacterial
     Dosage: 0.5 GRAM, QID
     Route: 041
     Dates: start: 20240620, end: 20240624

REACTIONS (2)
  - Gastrointestinal haemorrhage [Unknown]
  - Rash [Recovering/Resolving]

NARRATIVE: CASE EVENT DATE: 20240623
